FAERS Safety Report 8599157-0 (Version None)
Quarter: 2012Q3

REPORT INFORMATION
  Report Type: 
  Country: None (occurrence: None)
  Receive Date: 20120816
  Receipt Date: 19960610
  Transmission Date: 20120928
  Serious: Yes (Other)
  Sender: FDA-Public Use
  Company Number: US-ROCHE-1101971

PATIENT
  Sex: Female

DRUGS (1)
  1. ACTIVASE [Suspect]
     Indication: MYOCARDIAL INFARCTION

REACTIONS (2)
  - PULMONARY CONGESTION [None]
  - CARDIAC FAILURE [None]
